FAERS Safety Report 15857380 (Version 1)
Quarter: 2019Q1

REPORT INFORMATION
  Report Type: Spontaneous
  Country: US (occurrence: US)
  Receive Date: 20190122
  Receipt Date: 20190122
  Transmission Date: 20190417
  Serious: Yes (Disabling)
  Sender: FDA-Public Use
  Company Number: None

PATIENT
  Age: 77 Year
  Sex: Female
  Weight: 73.8 kg

DRUGS (1)
  1. PROLIA [Suspect]
     Active Substance: DENOSUMAB
     Indication: OSTEOPOROSIS
     Route: 058

REACTIONS (6)
  - Arthralgia [None]
  - Discomfort [None]
  - Loss of personal independence in daily activities [None]
  - Asthenia [None]
  - Dizziness [None]
  - Bone pain [None]

NARRATIVE: CASE EVENT DATE: 20181022
